FAERS Safety Report 21633594 (Version 2)
Quarter: 2022Q4

REPORT INFORMATION
  Report Type: Spontaneous
  Country: MY (occurrence: None)
  Receive Date: 20221123
  Receipt Date: 20221209
  Transmission Date: 20230113
  Serious: Yes (Other)
  Sender: FDA-Public Use
  Company Number: MY-ROCHE-3222759

PATIENT
  Age: 74 Year
  Sex: Male

DRUGS (9)
  1. RITUXIMAB [Suspect]
     Active Substance: RITUXIMAB
     Indication: Diffuse large B-cell lymphoma
     Route: 065
     Dates: start: 20180904, end: 20190214
  2. DOXORUBICIN [Suspect]
     Active Substance: DOXORUBICIN
     Indication: Diffuse large B-cell lymphoma
     Route: 065
     Dates: start: 20180904, end: 20190214
  3. VINCRISTINE [Suspect]
     Active Substance: VINCRISTINE
     Indication: Diffuse large B-cell lymphoma
     Route: 065
     Dates: start: 20180904, end: 20190214
  4. PREDNISOLONE [Suspect]
     Active Substance: PREDNISOLONE
     Indication: Diffuse large B-cell lymphoma
     Route: 065
     Dates: start: 20180904, end: 20190214
  5. CYCLOPHOSPHAMIDE [Suspect]
     Active Substance: CYCLOPHOSPHAMIDE
     Indication: Diffuse large B-cell lymphoma
     Route: 065
     Dates: start: 20180904, end: 20190214
  6. DEXAMETHASONE [Suspect]
     Active Substance: DEXAMETHASONE
     Indication: Diffuse large B-cell lymphoma
     Route: 065
     Dates: start: 20190906, end: 20191104
  7. CYTARABINE [Suspect]
     Active Substance: CYTARABINE
     Indication: Diffuse large B-cell lymphoma
     Route: 065
     Dates: start: 20190906, end: 20191104
  8. CARBOPLATIN [Suspect]
     Active Substance: CARBOPLATIN
     Indication: Diffuse large B-cell lymphoma
     Route: 065
     Dates: start: 20190906, end: 20191104
  9. SELINEXOR [Suspect]
     Active Substance: SELINEXOR
     Indication: Diffuse large B-cell lymphoma
     Route: 065
     Dates: start: 20220701, end: 20221124

REACTIONS (1)
  - Disease progression [Unknown]
